FAERS Safety Report 16118515 (Version 4)
Quarter: 2019Q4

REPORT INFORMATION
  Report Type: Spontaneous
  Country: IL (occurrence: IL)
  Receive Date: 20190326
  Receipt Date: 20191022
  Transmission Date: 20200122
  Serious: Yes (Other)
  Sender: FDA-Public Use
  Company Number: IL-PFIZER INC-2019125512

PATIENT
  Age: 76 Year
  Sex: Female

DRUGS (9)
  1. METHYLPREDNISOLONE ACETATE. [Suspect]
     Active Substance: METHYLPREDNISOLONE ACETATE
     Dosage: 80 MG, UNK
     Route: 008
     Dates: start: 201607
  2. OMNIPAQUE [Suspect]
     Active Substance: IOHEXOL
     Dosage: UNK, (INJECTING 0.5-.5 ML OF THE CONTRAST MEDIA IOHEXOL
     Route: 008
     Dates: start: 201607
  3. METHYLPREDNISOLONE ACETATE. [Suspect]
     Active Substance: METHYLPREDNISOLONE ACETATE
     Indication: BACK PAIN
     Dosage: 80 MG, UNK
     Route: 008
     Dates: start: 201605
  4. SODIUM CHLORIDE. [Suspect]
     Active Substance: SODIUM CHLORIDE
     Indication: BACK PAIN
     Dosage: UNK, (2 ML NACL AT A TOTAL VOLUME OF 7 ML WERE INJECTED)
     Route: 008
     Dates: start: 201605
  5. IOHEXOL [Concomitant]
     Active Substance: IOHEXOL
  6. LIDOCAINE. [Suspect]
     Active Substance: LIDOCAINE
     Dosage: 30 MG, UNK
     Route: 008
     Dates: start: 201607
  7. OMNIPAQUE [Suspect]
     Active Substance: IOHEXOL
     Indication: BACK PAIN
     Dosage: UNK, (INJECTING 0.5-.5 ML OF THE CONTRAST MEDIA IOHEXOL
     Route: 008
     Dates: start: 201605
  8. SODIUM CHLORIDE. [Suspect]
     Active Substance: SODIUM CHLORIDE
     Dosage: UNK, (2 ML NACL AT A TOTAL VOLUME OF 7 ML WERE INJECTED)
     Route: 008
     Dates: start: 201607
  9. LIDOCAINE. [Suspect]
     Active Substance: LIDOCAINE
     Indication: BACK PAIN
     Dosage: 30 MG, UNK
     Route: 008
     Dates: start: 201605

REACTIONS (3)
  - Product use issue [Unknown]
  - Off label use [Unknown]
  - Arachnoiditis [Unknown]
